FAERS Safety Report 4712036-1 (Version None)
Quarter: 2005Q2

REPORT INFORMATION
  Report Type: 
  Country: None (occurrence: None)
  Receive Date: 20050629
  Receipt Date: 20050401
  Transmission Date: 20051028
  Serious: No
  Sender: FDA-Public Use
  Company Number: 05P-163-0295966-00

PATIENT
  Age: 41 Year
  Sex: Female

DRUGS (6)
  1. HUMIRA [Suspect]
     Indication: PSORIATIC ARTHROPATHY
     Dosage: 40 MG, 1 IN 2 WK, SUBCUTANEOUS
     Route: 058
     Dates: start: 20050324
  2. PROPRANOLOL HYDROCHLORIDE [Concomitant]
  3. OLANZAPINE [Concomitant]
  4. CELECOXIB [Concomitant]
  5. FLUVOXAMINE MALEATE [Concomitant]
  6. MULTI-VITAMINS [Concomitant]

REACTIONS (1)
  - RASH [None]
